FAERS Safety Report 5578797-7 (Version None)
Quarter: 2008Q1

REPORT INFORMATION
  Report Type: 
  Country: None (occurrence: None)
  Receive Date: 20080102
  Receipt Date: 20071218
  Transmission Date: 20080703
  Serious: Yes (Hospitalization)
  Sender: FDA-Public Use
  Company Number: FR-TEVA-165553ISR

PATIENT
  Sex: Male

DRUGS (5)
  1. FLUOROURACIL [Suspect]
     Indication: OROPHARYNGEAL CANCER STAGE UNSPECIFIED
     Route: 041
     Dates: start: 20070226, end: 20070301
  2. CARBOPLATIN [Suspect]
     Indication: OROPHARYNGEAL CANCER STAGE UNSPECIFIED
     Route: 041
     Dates: start: 20070226, end: 20070301
  3. METHYLPREDNISOLONE SODIUM SUCCINATE [Suspect]
     Indication: PREMEDICATION
     Route: 042
     Dates: start: 20070226, end: 20070301
  4. ALIZAPRIDE HYDROCHLORIDE [Suspect]
     Indication: PREMEDICATION
     Route: 042
     Dates: start: 20070226, end: 20070301
  5. GRANISETRON [Suspect]
     Indication: PREMEDICATION
     Route: 042
     Dates: start: 20070226, end: 20070301

REACTIONS (3)
  - PURPURA [None]
  - RASH ERYTHEMATOUS [None]
  - TOXIC SKIN ERUPTION [None]
